FAERS Safety Report 4618529-X (Version None)
Quarter: 2005Q2

REPORT INFORMATION
  Report Type: 
  Country: None (occurrence: None)
  Receive Date: 20050311
  Receipt Date: 20041116
  Transmission Date: 20051028
  Serious: No
  Sender: FDA-Public Use
  Company Number: 2004-BP-10842BP

PATIENT
  Age: 68 Year
  Sex: Female

DRUGS (9)
  1. SPIRIVA [Suspect]
     Indication: CHRONIC OBSTRUCTIVE PULMONARY DISEASE
     Dosage: 18 MCG (18 MCG), IH
     Route: 055
     Dates: start: 20040901, end: 20041014
  2. ALBUTEROL [Concomitant]
  3. DETROL [Concomitant]
  4. SINGULAIR (MONTELUKAST) [Concomitant]
  5. HUMIBID (GUAIFENESIN) [Concomitant]
  6. MIACALCIN [Concomitant]
  7. MULTI-VITAMIN [Concomitant]
  8. FLOVENT [Concomitant]
  9. NICOTROL (NICOTINE) [Concomitant]

REACTIONS (1)
  - DRUG INEFFECTIVE [None]
